FAERS Safety Report 5723060-4 (Version None)
Quarter: 2008Q2

REPORT INFORMATION
  Report Type: 
  Country: None (occurrence: None)
  Receive Date: 20080430
  Receipt Date: 20071106
  Transmission Date: 20081010
  Serious: No
  Sender: FDA-Public Use
  Company Number: US-KINGPHARMUSA00001-K200701436

PATIENT

DRUGS (2)
  1. BICILLIN C-R 900/300 [Suspect]
     Indication: LYME DISEASE
     Dosage: UNK, BIW FOR 2 WEEKS
     Dates: start: 20071011, end: 20071001
  2. BICILLIN C-R 900/300 [Suspect]
     Dosage: UNK, QW
     Dates: start: 20071001, end: 20071001

REACTIONS (5)
  - MUSCLE SPASMS [None]
  - MUSCLE TIGHTNESS [None]
  - MYALGIA [None]
  - NEURALGIA [None]
  - NEUROPATHY PERIPHERAL [None]
